FAERS Safety Report 6896574 (Version 5)
Quarter: 2013Q2

REPORT INFORMATION
  Report Type: Spontaneous
  Country: US (occurrence: US)
  Receive Date: 20090130
  Receipt Date: 20130509
  Transmission Date: 20140414
  Serious: Yes (Hospitalization)
  Sender: FDA-Public Use
  Company Number: US-BIOGENIDEC-2009BI002656

PATIENT
  Age: 44 Year
  Sex: Female
  Weight: 63 kg

DRUGS (2)
  1. AVONEX [Suspect]
     Indication: MULTIPLE SCLEROSIS
     Route: 030
     Dates: start: 20080707, end: 20090315
  2. AVONEX [Suspect]
     Indication: MULTIPLE SCLEROSIS
     Route: 030
     Dates: start: 20101023

REACTIONS (5)
  - Tongue cancer metastatic [Recovered/Resolved]
  - Wound infection staphylococcal [Recovered/Resolved]
  - Blood potassium decreased [Recovered/Resolved]
  - Impaired healing [Unknown]
  - White blood cell count decreased [Recovered/Resolved]
